FAERS Safety Report 25357314 (Version 2)
Quarter: 2025Q2

REPORT INFORMATION
  Report Type: Report from Study
  Country: JP (occurrence: JP)
  Receive Date: 20250526
  Receipt Date: 20250529
  Transmission Date: 20250717
  Serious: Yes (Hospitalization)
  Sender: ROCHE
  Company Number: JP-CHUGAI-2025013764

PATIENT
  Age: 69 Year
  Sex: Male
  Weight: 59 kg

DRUGS (1)
  1. TECENTRIQ [Suspect]
     Active Substance: ATEZOLIZUMAB
     Indication: Non-small cell lung cancer
     Route: 042
     Dates: start: 20241205, end: 20250403

REACTIONS (3)
  - Adrenal insufficiency [Recovering/Resolving]
  - Hyperthyroidism [Not Recovered/Not Resolved]
  - Hypophysitis [Recovering/Resolving]

NARRATIVE: CASE EVENT DATE: 20250414
